FAERS Safety Report 9461624 (Version 2)
Quarter: 2013Q3

REPORT INFORMATION
  Report Type: Spontaneous
  Country: JP (occurrence: JP)
  Receive Date: 20130816
  Receipt Date: 20130905
  Transmission Date: 20140515
  Serious: Yes (Death)
  Sender: FDA-Public Use
  Company Number: JP-JNJFOC-20130805017

PATIENT
  Sex: 0

DRUGS (1)
  1. ONEDURO [Suspect]
     Indication: CANCER PAIN
     Route: 062
     Dates: end: 20130807

REACTIONS (1)
  - Disease progression [Fatal]
